FAERS Safety Report 14536804 (Version 1)
Quarter: 2018Q1

REPORT INFORMATION
  Report Type: Report from Study
  Country: FR (occurrence: FR)
  Receive Date: 20180215
  Receipt Date: 20180215
  Transmission Date: 20180509
  Serious: Yes (Death, Hospitalization, Other)
  Sender: FDA-Public Use
  Company Number: FR-TEVA-2018-FR-856155

PATIENT
  Age: 67 Year
  Sex: Male

DRUGS (4)
  1. GEMCITABINE HYDROCHLORIDE. [Suspect]
     Active Substance: GEMCITABINE HYDROCHLORIDE
     Indication: LUNG NEOPLASM MALIGNANT
     Route: 065
     Dates: start: 20170512, end: 20170526
  2. NIVOLUMAB [Suspect]
     Active Substance: NIVOLUMAB
     Indication: PRODUCT USED FOR UNKNOWN INDICATION
     Route: 065
     Dates: start: 20170616
  3. NIVOLUMAB [Suspect]
     Active Substance: NIVOLUMAB
     Indication: LUNG NEOPLASM MALIGNANT
     Route: 065
     Dates: start: 20170512, end: 20170526
  4. GEMCITABINE HYDROCHLORIDE. [Suspect]
     Active Substance: GEMCITABINE HYDROCHLORIDE
     Indication: PRODUCT USED FOR UNKNOWN INDICATION
     Route: 065
     Dates: start: 20170616

REACTIONS (13)
  - Asthenia [Unknown]
  - Pleural effusion [Unknown]
  - Oral candidiasis [Unknown]
  - Pleural infection [Fatal]
  - Insomnia [Unknown]
  - Anxiety [Unknown]
  - Confusional state [Fatal]
  - Respiratory disorder [Unknown]
  - Neuralgia [Unknown]
  - Off label use [Unknown]
  - Analgesic therapy [Fatal]
  - Pain [Fatal]
  - Lung disorder [Unknown]

NARRATIVE: CASE EVENT DATE: 20170609
